FAERS Safety Report 9175423 (Version 3)
Quarter: 2013Q2

REPORT INFORMATION
  Report Type: Report from Study
  Country: BR (occurrence: BR)
  Receive Date: 20130320
  Receipt Date: 20130404
  Transmission Date: 20140414
  Serious: Yes (Other)
  Sender: FDA-Public Use
  Company Number: BR-ROCHE-1203139

PATIENT
  Age: 51 Year
  Sex: Male

DRUGS (1)
  1. VEMURAFENIB [Suspect]
     Indication: METASTATIC MALIGNANT MELANOMA
     Dosage: LAST DOSE PRIOR TO SAE 12/MAR/2013, TEMPORARILY INTERRUPTED
     Route: 048
     Dates: start: 20111221, end: 20130314

REACTIONS (1)
  - Uveitis [Not Recovered/Not Resolved]
